FAERS Safety Report 24460222 (Version 1)
Quarter: 2024Q4

REPORT INFORMATION
  Report Type: Report from Study
  Country: IN (occurrence: IN)
  Receive Date: 20241018
  Receipt Date: 20241018
  Transmission Date: 20250115
  Serious: No
  Sender: ROCHE
  Company Number: IN-ROCHE-3556920

PATIENT
  Age: 46 Year
  Sex: Male

DRUGS (2)
  1. RITUXIMAB [Suspect]
     Active Substance: RITUXIMAB
     Indication: B-cell prolymphocytic leukaemia
     Dosage: DAY 1 FO 28 DAYS CYLE
     Route: 041
  2. BENDAMUSTINE [Concomitant]
     Active Substance: BENDAMUSTINE
     Indication: B-cell prolymphocytic leukaemia
     Dosage: DAYS 1-2.
     Route: 065

REACTIONS (1)
  - Infusion related reaction [Unknown]
